FAERS Safety Report 4836635-1 (Version None)
Quarter: 2005Q4

REPORT INFORMATION
  Report Type: 
  Country: None (occurrence: None)
  Receive Date: 20051121
  Receipt Date: 20051107
  Transmission Date: 20060501
  Serious: Yes (Other)
  Sender: FDA-Public Use
  Company Number: 2005RR-01088

PATIENT
  Age: 72 Year
  Sex: Female

DRUGS (7)
  1. CIPROFLOXACIN [Suspect]
     Indication: URINARY TRACT INFECTION
     Dosage: SEE IMAGE
     Route: 042
  2. CIPROFLOXACIN [Suspect]
     Indication: URINARY TRACT INFECTION
     Dosage: SEE IMAGE
     Route: 042
  3. AMLODIPINE [Concomitant]
  4. METROPROLOL (METOPROLOL TARTRATE) [Concomitant]
  5. ROSIGLITAZONE [Concomitant]
  6. MIRTAZAPINE [Concomitant]
  7. INSULIN GLARGINE [Concomitant]

REACTIONS (1)
  - THROMBOCYTOPENIA [None]
